FAERS Safety Report 17941219 (Version 4)
Quarter: 2020Q3

REPORT INFORMATION
  Report Type: Spontaneous
  Country: AE (occurrence: AE)
  Receive Date: 20200624
  Receipt Date: 20200819
  Transmission Date: 20201103
  Serious: Yes (Other)
  Sender: FDA-Public Use
  Company Number: AE-JNJFOC-20200622162

PATIENT
  Age: 45 Year
  Sex: Female

DRUGS (2)
  1. SPRAVATO [Suspect]
     Active Substance: ESKETAMINE
     Indication: DEPRESSION
     Dates: start: 20200615
  2. SPRAVATO [Suspect]
     Active Substance: ESKETAMINE
     Dates: start: 202007

REACTIONS (8)
  - Hallucination, auditory [Recovered/Resolved]
  - Dissociation [Recovered/Resolved]
  - Malaise [Unknown]
  - Sensation of foreign body [Unknown]
  - Sedation [Recovered/Resolved]
  - Anxiety [Recovered/Resolved]
  - Depressed mood [Unknown]
  - Crying [Unknown]

NARRATIVE: CASE EVENT DATE: 20200615
